FAERS Safety Report 8271276-8 (Version None)
Quarter: 2012Q2

REPORT INFORMATION
  Report Type: 
  Country: None (occurrence: None)
  Receive Date: 20120410
  Receipt Date: 20120405
  Transmission Date: 20120825
  Serious: Yes (Hospitalization)
  Sender: FDA-Public Use
  Company Number: FR-PFIZER INC-2012074262

PATIENT
  Age: 27 Year
  Sex: Male
  Weight: 72 kg

DRUGS (16)
  1. AMISULPRIDE [Concomitant]
     Dosage: UNK
     Route: 048
     Dates: start: 20070601
  2. ANDROTARDYL [Concomitant]
     Indication: HORMONE LEVEL ABNORMAL
     Dosage: UNK, INJECTION
     Dates: start: 20060227
  3. VALPROIC ACID [Concomitant]
     Indication: MAJOR DEPRESSION
     Dosage: UNK
     Route: 048
     Dates: start: 20070601
  4. HYDROCORTISONE [Concomitant]
     Dosage: 20 MG, 1X/DAY
     Dates: start: 20060227, end: 20100201
  5. INDAPAMIDE [Concomitant]
     Indication: ESSENTIAL HYPERTENSION
     Dosage: UNK
     Route: 048
     Dates: start: 20060601
  6. SOMATROPIN RDNA [Suspect]
     Dosage: 0.2 MG, 1X/DAY, 7 INJECTION PER WEEK
     Dates: start: 20050119
  7. EFFEXOR [Concomitant]
     Indication: MAJOR DEPRESSION
     Dosage: UNK
     Route: 048
     Dates: start: 20070601
  8. LEVOTHYROXINE SODIUM [Concomitant]
     Indication: HORMONE LEVEL ABNORMAL
     Dosage: UNK
     Route: 048
     Dates: start: 20070119
  9. ANDROTARDYL [Concomitant]
     Indication: HYPOGONADISM MALE
  10. ASPIRIN [Concomitant]
     Indication: ESSENTIAL HYPERTENSION
     Dosage: UNK
     Route: 048
     Dates: start: 20050101
  11. MINIRIN [Concomitant]
     Indication: BLOOD ANTIDIURETIC HORMONE ABNORMAL
     Dosage: UNK
     Route: 048
     Dates: start: 20050119
  12. HYDROCORTISONE [Concomitant]
     Dosage: UNK
     Dates: start: 20100202
  13. LEVOTHYROXINE SODIUM [Concomitant]
     Indication: PRIMARY HYPOTHYROIDISM
  14. COZAAR [Concomitant]
     Indication: ESSENTIAL HYPERTENSION
     Dosage: UNK
     Route: 048
     Dates: start: 20050101
  15. HYDROCORTISONE [Concomitant]
     Indication: BLOOD CORTICOTROPHIN ABNORMAL
     Dosage: 10 MG, 1X/DAY
     Dates: start: 20050119, end: 20060226
  16. AMLODIPINE BESYLATE [Concomitant]
     Indication: ESSENTIAL HYPERTENSION
     Dosage: UNK
     Route: 048
     Dates: start: 20070601

REACTIONS (3)
  - PROTEINURIA [None]
  - CONDITION AGGRAVATED [None]
  - DIABETIC FOOT [None]
